FAERS Safety Report 25104740 (Version 1)
Quarter: 2025Q1

REPORT INFORMATION
  Report Type: Spontaneous
  Country: US (occurrence: None)
  Receive Date: 20250320
  Receipt Date: 20250320
  Transmission Date: 20250409
  Serious: Yes (Death)
  Sender: FDA-CTU
  Company Number: None

PATIENT
  Age: 68 Year
  Sex: Male
  Weight: 80.85 kg

DRUGS (11)
  1. VOSEVI [Suspect]
     Active Substance: SOFOSBUVIR\VELPATASVIR\VOXILAPREVIR
     Indication: Hepatitis C
     Dosage: OTHER QUANTITY : 400-100-100 MG;?FREQUENCY : DAILY;?
     Route: 048
     Dates: start: 20250207, end: 20250211
  2. OXYCODONE [Concomitant]
     Active Substance: OXYCODONE
  3. DOCUSATE [Concomitant]
     Active Substance: DOCUSATE
  4. BACTRIM [Concomitant]
     Active Substance: SULFAMETHOXAZOLE\TRIMETHOPRIM
  5. MELOXICAM [Concomitant]
     Active Substance: MELOXICAM
  6. DORZOLAMIDE\TIMOLOL [Concomitant]
     Active Substance: DORZOLAMIDE\TIMOLOL
  7. BRIMONIDINE [Concomitant]
     Active Substance: BRIMONIDINE TARTRATE
  8. PREDNISOLONE ACETATE [Concomitant]
     Active Substance: PREDNISOLONE ACETATE
  9. ATROPINE SULFATE [Concomitant]
     Active Substance: ATROPINE SULFATE
  10. TAFLUPROST [Concomitant]
     Active Substance: TAFLUPROST
  11. MAXITROL [Concomitant]
     Active Substance: DEXAMETHASONE\NEOMYCIN SULFATE\POLYMYXIN B SULFATE

REACTIONS (2)
  - Cardiac arrest [None]
  - Pulmonary embolism [None]

NARRATIVE: CASE EVENT DATE: 20250211
